FAERS Safety Report 6748716-6 (Version None)
Quarter: 2010Q2

REPORT INFORMATION
  Report Type: 
  Country: None (occurrence: None)
  Receive Date: 20100601
  Receipt Date: 20100518
  Transmission Date: 20101027
  Serious: Yes (Hospitalization, Other)
  Sender: FDA-Public Use
  Company Number: PHHY2010BR32846

PATIENT
  Age: 9 Year
  Sex: Female

DRUGS (2)
  1. GLEEVEC [Suspect]
     Indication: ACUTE LYMPHOCYTIC LEUKAEMIA
     Dosage: 600 MG/DAY
  2. GLEEVEC [Suspect]
     Dosage: 600 MG DILUTED INTO 300 ML OF WATER
     Dates: start: 20100517

REACTIONS (3)
  - NAUSEA [None]
  - NERVOUS SYSTEM DISORDER [None]
  - SURGERY [None]
